FAERS Safety Report 6074429-2 (Version None)
Quarter: 2009Q1

REPORT INFORMATION
  Report Type: 
  Country: None (occurrence: None)
  Receive Date: 20090211
  Receipt Date: 20090205
  Transmission Date: 20090719
  Serious: Yes (Hospitalization)
  Sender: FDA-Public Use
  Company Number: BR-ABBOTT-09P-020-0501782-00

PATIENT
  Sex: Male

DRUGS (3)
  1. HUMIRA [Suspect]
     Indication: RHEUMATOID ARTHRITIS
     Route: 058
     Dates: start: 20080505, end: 20090112
  2. ARAVA [Concomitant]
     Indication: DRUG USE FOR UNKNOWN INDICATION
  3. UNKNOWN CORTICOIDS [Concomitant]
     Indication: DRUG USE FOR UNKNOWN INDICATION

REACTIONS (9)
  - ABDOMINAL PAIN [None]
  - CHILLS [None]
  - COUGH [None]
  - HELICOBACTER INFECTION [None]
  - HEPATIC FIBROSIS [None]
  - PERITONEAL EFFUSION [None]
  - PLEURAL DISORDER [None]
  - PYREXIA [None]
  - TUBERCULOSIS [None]
